FAERS Safety Report 6757716-1 (Version None)
Quarter: 2010Q2

REPORT INFORMATION
  Report Type: 
  Country: None (occurrence: None)
  Receive Date: 20100602
  Receipt Date: 20100518
  Transmission Date: 20101027
  Serious: Yes (Death, Other)
  Sender: FDA-Public Use
  Company Number: CLOF-1000616

PATIENT
  Age: 16 Month
  Sex: Male

DRUGS (5)
  1. COLAR (CLOFARABINE) SOLUTION FOR INFUSION [Suspect]
     Indication: ACUTE LYMPHOCYTIC LEUKAEMIA
     Dosage: 20 MG/M2,QDX5, INTRAVENOUS
     Route: 042
     Dates: start: 20090420, end: 20090424
  2. MELPHALAN HYDROCHLORIDE [Suspect]
     Indication: ACUTE LYMPHOCYTIC LEUKAEMIA
     Dosage: 70 MG/M2, QD, INTRAVENOUS
     Route: 042
     Dates: start: 20090426, end: 20090427
  3. THIOTEPA [Suspect]
     Indication: ACUTE LYMPHOCYTIC LEUKAEMIA
     Dosage: 10 MG/KG, QD, INTRAVENOUS
     Route: 042
     Dates: start: 20090425, end: 20090425
  4. TACROLIMUS [Concomitant]
  5. METHOTREXATE [Concomitant]

REACTIONS (22)
  - ACUTE GRAFT VERSUS HOST DISEASE IN INTESTINE [None]
  - ACUTE GRAFT VERSUS HOST DISEASE IN SKIN [None]
  - ACUTE RESPIRATORY DISTRESS SYNDROME [None]
  - ADENOVIRUS TEST POSITIVE [None]
  - BRONCHOSPASM [None]
  - DEVICE RELATED INFECTION [None]
  - DRUG RESISTANCE [None]
  - EPISTAXIS [None]
  - EPSTEIN-BARR VIRUS TEST POSITIVE [None]
  - ERYTHEMA MULTIFORME [None]
  - GASTROINTESTINAL HAEMORRHAGE [None]
  - HEPATOSPLENOMEGALY [None]
  - HYPOTHERMIA [None]
  - HYPOXIA [None]
  - INFLUENZA A VIRUS TEST POSITIVE [None]
  - PNEUMONITIS [None]
  - PULMONARY TOXICITY [None]
  - PYREXIA [None]
  - STEM CELL TRANSPLANT [None]
  - TACHYCARDIA [None]
  - TACHYPNOEA [None]
  - VIRAL TEST POSITIVE [None]
